FAERS Safety Report 25677634 (Version 1)
Quarter: 2025Q3

REPORT INFORMATION
  Report Type: Spontaneous
  Country: US (occurrence: None)
  Receive Date: 20250813
  Receipt Date: 20250813
  Transmission Date: 20251021
  Serious: Yes (unspecified)
  Sender: FDA-CTU
  Company Number: None

PATIENT
  Age: 59 Year
  Sex: Male
  Weight: 82.4 kg

DRUGS (5)
  1. PACLITAXEL [Suspect]
     Active Substance: PACLITAXEL
     Indication: Penile cancer
     Route: 041
     Dates: start: 20250813, end: 20250813
  2. PACLITAXEL [Suspect]
     Active Substance: PACLITAXEL
     Indication: Leukocytosis
  3. Saline Infusion [Concomitant]
     Dates: start: 20250813
  4. EPIPEN [Concomitant]
     Active Substance: EPINEPHRINE
     Dates: start: 20250813, end: 20250813
  5. SOLU-CORTEF [Concomitant]
     Active Substance: HYDROCORTISONE SODIUM SUCCINATE
     Dates: start: 20250813, end: 20250813

REACTIONS (5)
  - Respiratory distress [None]
  - Hyperhidrosis [None]
  - Tachycardia [None]
  - Tachypnoea [None]
  - Oxygen saturation decreased [None]

NARRATIVE: CASE EVENT DATE: 20250813
